FAERS Safety Report 8041506-6 (Version None)
Quarter: 2012Q1

REPORT INFORMATION
  Report Type: 
  Country: None (occurrence: None)
  Receive Date: 20120112
  Receipt Date: 20120105
  Transmission Date: 20120608
  Serious: Yes (Other)
  Sender: FDA-Public Use
  Company Number: US-PFIZER INC-2012004290

PATIENT
  Sex: Male

DRUGS (4)
  1. LEVITRA [Suspect]
     Dosage: UNK
  2. CIALIS [Suspect]
     Dosage: UNK
  3. CAVERJECT [Suspect]
     Dosage: UNK
  4. VIAGRA [Suspect]
     Dosage: UNK
     Dates: start: 19970101

REACTIONS (5)
  - DYSPHAGIA [None]
  - ERECTILE DYSFUNCTION [None]
  - OESOPHAGEAL DISORDER [None]
  - ANGIOPATHY [None]
  - DRUG INEFFECTIVE [None]
